FAERS Safety Report 4510087-3 (Version None)
Quarter: 2004Q4

REPORT INFORMATION
  Report Type: 
  Country: None (occurrence: None)
  Receive Date: 20041119
  Receipt Date: 20041107
  Transmission Date: 20050328
  Serious: Yes (Hospitalization, Other)
  Sender: FDA-Public Use
  Company Number: 209278

PATIENT
  Age: 32 Year
  Sex: Female

DRUGS (7)
  1. XOLAIR [Suspect]
     Indication: ASTHMA
     Dosage: 375 MG, Q2W, SUBCUTANEOUS
     Route: 058
     Dates: start: 20040914
  2. INHALED CORTICOSTEROIDS (CORTICOSTEROIDS NOS) [Concomitant]
  3. ORAL STEROIDS (STEROID NOS) [Concomitant]
  4. LONG-ACTING BETA-2 AGONIST NOS (LONG-ACTING BETA-2 AGONIST NOS) [Concomitant]
  5. PREDNISOLONE [Concomitant]
  6. METFORMIN HCL [Concomitant]
  7. LOSARTAN (LOSARTAN POTASSIUM) [Concomitant]

REACTIONS (18)
  - ALOPECIA [None]
  - AMNESIA [None]
  - ARTHRALGIA [None]
  - ASTHENIA [None]
  - BLOOD IRON DECREASED [None]
  - CHEST PAIN [None]
  - DIARRHOEA [None]
  - FATIGUE [None]
  - HEADACHE [None]
  - HYPOGLYCAEMIA [None]
  - INDIFFERENCE [None]
  - MEDICATION ERROR [None]
  - OVERDOSE [None]
  - PYREXIA [None]
  - SYNCOPE [None]
  - VISION BLURRED [None]
  - VITAMIN B12 DECREASED [None]
  - VOMITING [None]
